FAERS Safety Report 20587352 (Version 2)
Quarter: 2022Q2

REPORT INFORMATION
  Report Type: Report from Study
  Country: US (occurrence: US)
  Receive Date: 20220314
  Receipt Date: 20220615
  Transmission Date: 20220721
  Serious: No
  Sender: FDA-Public Use
  Company Number: US-TAKEDA-2022TUS016769

PATIENT
  Age: 73 Year
  Sex: Male

DRUGS (8)
  1. TEDUGLUTIDE [Suspect]
     Active Substance: TEDUGLUTIDE
     Indication: Short-bowel syndrome
     Dosage: 1.76 MILLIGRAM, QD
     Route: 058
     Dates: start: 20200224
  2. TEDUGLUTIDE [Suspect]
     Active Substance: TEDUGLUTIDE
     Indication: Short-bowel syndrome
     Dosage: 1.76 MILLIGRAM, QD
     Route: 058
     Dates: start: 20200224
  3. TEDUGLUTIDE [Suspect]
     Active Substance: TEDUGLUTIDE
     Indication: Short-bowel syndrome
     Dosage: 1.76 MILLIGRAM, QD
     Route: 058
     Dates: start: 20200224
  4. TEDUGLUTIDE [Suspect]
     Active Substance: TEDUGLUTIDE
     Indication: Short-bowel syndrome
     Dosage: 1.76 MILLIGRAM, QD
     Route: 058
     Dates: start: 20200224
  5. TEDUGLUTIDE [Suspect]
     Active Substance: TEDUGLUTIDE
     Dosage: 1.76 MILLIGRAM, QD
     Route: 058
     Dates: start: 20211207
  6. TEDUGLUTIDE [Suspect]
     Active Substance: TEDUGLUTIDE
     Dosage: 1.76 MILLIGRAM, QD
     Route: 058
     Dates: start: 20211207
  7. TEDUGLUTIDE [Suspect]
     Active Substance: TEDUGLUTIDE
     Dosage: 1.76 MILLIGRAM, QD
     Route: 058
     Dates: start: 20211207
  8. TEDUGLUTIDE [Suspect]
     Active Substance: TEDUGLUTIDE
     Dosage: 1.76 MILLIGRAM, QD
     Route: 058
     Dates: start: 20211207

REACTIONS (4)
  - Renal neoplasm [Unknown]
  - Cardiac disorder [Unknown]
  - Arthralgia [Unknown]
  - Neck pain [Unknown]

NARRATIVE: CASE EVENT DATE: 20220526
